FAERS Safety Report 25800478 (Version 1)
Quarter: 2025Q3

REPORT INFORMATION
  Report Type: Spontaneous
  Country: US (occurrence: US)
  Receive Date: 20250915
  Receipt Date: 20250915
  Transmission Date: 20251021
  Serious: Yes (Life-Threatening, Hospitalization)
  Sender: ENDO
  Company Number: US-ENDO USA, INC.-2025-001920

PATIENT
  Age: 39 Year
  Sex: Female

DRUGS (10)
  1. KETALAR [Suspect]
     Active Substance: KETAMINE HYDROCHLORIDE
     Indication: Pain
     Dosage: 30 MILLIGRAM, SINGLE
     Route: 042
  2. KETALAR [Suspect]
     Active Substance: KETAMINE HYDROCHLORIDE
     Dosage: 20 MILLIGRAM, SINGLE
     Route: 042
  3. COCAINE [Concomitant]
     Active Substance: COCAINE
     Indication: Product used for unknown indication
     Route: 065
  4. SODIUM BICITRATE [Concomitant]
     Indication: Preoperative care
     Route: 065
  5. RANITIDINE [Concomitant]
     Active Substance: RANITIDINE
     Indication: Preoperative care
     Dosage: 50 MILLIGRAM, SINGLE (ONE HOUR BEFORE SURGERY)
     Route: 042
  6. LIDOCAINE IN 7.5% DEXTROSE [Concomitant]
     Indication: Spinal anaesthesia
     Dosage: 75 MILLIGRAM LIDOCAINE IN 7.5% DEXTROSE WITHOUT EPINEPHRINE, SINGLE (INJECTED AT THE L3-4 INTERSPACE
  7. FENTANYL [Concomitant]
     Active Substance: FENTANYL
     Indication: Product used for unknown indication
     Route: 065
  8. MIDAZOLAM [Concomitant]
     Active Substance: MIDAZOLAM
     Indication: Product used for unknown indication
     Route: 065
  9. MAGNESIUM SULFATE [Concomitant]
     Active Substance: MAGNESIUM SULFATE
     Indication: Tocolysis
     Route: 065
  10. TERBUTALINE [Concomitant]
     Active Substance: TERBUTALINE
     Indication: Tocolysis
     Route: 048

REACTIONS (5)
  - Pulmonary oedema [Recovered/Resolved]
  - Labile hypertension [Recovered/Resolved]
  - Tachycardia [Recovered/Resolved]
  - Left ventricular hypertrophy [Recovered/Resolved]
  - Mitral valve thickening [Recovered/Resolved]
